FAERS Safety Report 22270107 (Version 1)
Quarter: 2023Q2

REPORT INFORMATION
  Report Type: Spontaneous
  Country: US (occurrence: None)
  Receive Date: 20230428
  Receipt Date: 20230428
  Transmission Date: 20230721
  Serious: No
  Sender: FDA-Public Use
  Company Number: None

PATIENT
  Age: 72 Year
  Sex: Female
  Weight: 49.44 kg

DRUGS (23)
  1. ALECENSA [Suspect]
     Active Substance: ALECTINIB HYDROCHLORIDE
     Indication: Lung carcinoma cell type unspecified stage 0
     Dosage: FREQUENCY : TWICE A DAY;?
     Route: 048
  2. ALBUTEROL SULFATE [Concomitant]
     Active Substance: ALBUTEROL SULFATE
  3. Augmentin [Concomitant]
  4. Breo Ellipta Inhalation [Concomitant]
  5. DEXAMETHASONE [Concomitant]
  6. DULOXETINE [Concomitant]
  7. Dymistal Nasal Suspension [Concomitant]
  8. FENOFIBRATE [Concomitant]
  9. FIBER [Concomitant]
  10. FLUOROMETHOLONE [Concomitant]
  11. IPRATROPIUM [Concomitant]
     Active Substance: IPRATROPIUM
  12. Bromide Lorazepam [Concomitant]
  13. methyprednisolone [Concomitant]
  14. MONTELUKAST SODIUM [Concomitant]
  15. Nucala Subcutaneous Solution [Concomitant]
  16. ONDANSETRON [Concomitant]
  17. OXYCODONE [Concomitant]
  18. Pantoprazole Pepcid [Concomitant]
  19. PROCHLORPERAZINE [Concomitant]
  20. SPIRIVA [Concomitant]
  21. SUDOGEST [Concomitant]
     Active Substance: PSEUDOEPHEDRINE HYDROCHLORIDE
  22. TOPIRAMATE [Concomitant]
     Active Substance: TOPIRAMATE
  23. WARFARIN SODIUM [Concomitant]

REACTIONS (2)
  - Pneumonia [None]
  - Fatigue [None]
